FAERS Safety Report 6689068-X (Version None)
Quarter: 2010Q2

REPORT INFORMATION
  Report Type: 
  Country: None (occurrence: None)
  Receive Date: 20100420
  Receipt Date: 20100412
  Transmission Date: 20101027
  Serious: Yes (Other)
  Sender: FDA-Public Use
  Company Number: US-AMGEN-QUU405420

PATIENT
  Sex: Male

DRUGS (2)
  1. NPLATE [Suspect]
     Indication: IDIOPATHIC THROMBOCYTOPENIC PURPURA
     Dates: start: 20090921
  2. RITUXIMAB [Concomitant]
     Dates: start: 20090514

REACTIONS (3)
  - ANTIPHOSPHOLIPID SYNDROME [None]
  - EMBOLISM [None]
  - THROMBOSIS [None]
